FAERS Safety Report 17495393 (Version 1)
Quarter: 2020Q1

REPORT INFORMATION
  Report Type: Spontaneous
  Country: US (occurrence: US)
  Receive Date: 20200222
  Receipt Date: 20200222
  Transmission Date: 20200409
  Serious: Yes (Hospitalization)
  Sender: FDA-Public Use
  Company Number: None

PATIENT
  Age: 54 Year
  Sex: Female
  Weight: 45.2 kg

DRUGS (1)
  1. PACLITAXEL (TAXOL) (673089) [Suspect]
     Active Substance: PACLITAXEL
     Dates: end: 20200115

REACTIONS (5)
  - Pain [None]
  - Abdominal pain [None]
  - Vomiting [None]
  - Gastrointestinal tube insertion [None]
  - Nausea [None]

NARRATIVE: CASE EVENT DATE: 20200207
